FAERS Safety Report 9993773 (Version 1)
Quarter: 2014Q1

REPORT INFORMATION
  Report Type: Spontaneous
  Country: US (occurrence: US)
  Receive Date: 20140310
  Receipt Date: 20140310
  Transmission Date: 20141002
  Serious: Yes (Other)
  Sender: FDA-Public Use
  Company Number: PHEH2014US004467

PATIENT
  Age: 29 Year
  Sex: Female

DRUGS (5)
  1. FOCALIN XR [Suspect]
     Indication: ATTENTION DEFICIT/HYPERACTIVITY DISORDER
     Dosage: 30 MG, UNK
  2. FOCALIN [Concomitant]
     Indication: ATTENTION DEFICIT/HYPERACTIVITY DISORDER
     Dosage: 10 MG, TID
     Route: 048
  3. CYMBALTA [Concomitant]
     Dosage: UNK UKN, UNK
  4. ABILIFY [Concomitant]
     Dosage: UNK UKN, UNK
  5. LUNESTA [Concomitant]
     Dosage: UNK UKN, UNK

REACTIONS (4)
  - Road traffic accident [Unknown]
  - Spinal fracture [Unknown]
  - Drug screen positive [Unknown]
  - Therapeutic response decreased [Unknown]
